FAERS Safety Report 8492776-1 (Version None)
Quarter: 2012Q3

REPORT INFORMATION
  Report Type: 
  Country: None (occurrence: None)
  Receive Date: 20120706
  Receipt Date: 20120628
  Transmission Date: 20120928
  Serious: Yes (Other)
  Sender: FDA-Public Use
  Company Number: US-JNJFOC-20120614762

PATIENT
  Age: 85 Year
  Sex: Female
  Weight: 62.6 kg

DRUGS (10)
  1. DIOVAN [Concomitant]
  2. HYDROCHLOROTHIAZIDE [Concomitant]
     Route: 048
  3. AMARYL [Concomitant]
  4. ANTI-CHOLESTEROL [Concomitant]
  5. XARELTO [Suspect]
     Indication: CEREBROVASCULAR ACCIDENT PROPHYLAXIS
     Route: 048
     Dates: start: 20120201
  6. XARELTO [Suspect]
     Indication: ATRIAL FIBRILLATION
     Route: 048
     Dates: start: 20120201
  7. ATENOLOL [Concomitant]
  8. ALLOPURINOL [Concomitant]
     Indication: GOUT
  9. POTASSIUM [Concomitant]
     Route: 048
  10. GABAPENTIN [Concomitant]
     Indication: PAIN

REACTIONS (1)
  - ACUTE ABDOMEN [None]
